FAERS Safety Report 5384094-5 (Version None)
Quarter: 2007Q3

REPORT INFORMATION
  Report Type: 
  Country: None (occurrence: None)
  Receive Date: 20070711
  Receipt Date: 20070709
  Transmission Date: 20080115
  Serious: Yes (Death, Other)
  Sender: FDA-Public Use
  Company Number: IT-BRISTOL-MYERS SQUIBB COMPANY-13840855

PATIENT
  Sex: Female

DRUGS (1)
  1. CISPLATIN [Suspect]

REACTIONS (6)
  - BONE MARROW FAILURE [None]
  - DEATH [None]
  - DYSPHAGIA [None]
  - MUCOSAL INFLAMMATION [None]
  - OEDEMA MOUTH [None]
  - PYREXIA [None]
